FAERS Safety Report 21706098 (Version 1)
Quarter: 2022Q4

REPORT INFORMATION
  Report Type: Spontaneous
  Country: GB (occurrence: GB)
  Receive Date: 20221209
  Receipt Date: 20221209
  Transmission Date: 20230112
  Serious: Yes (Other)
  Sender: FDA-Public Use
  Company Number: GB-LEO Pharma-346619

PATIENT
  Age: 46 Year
  Sex: Female

DRUGS (17)
  1. BECLOMETHASONE\FORMOTEROL [Concomitant]
     Active Substance: BECLOMETHASONE\FORMOTEROL
     Indication: Asthma
     Dosage: (RARELY ATTENDED FOR NEBULISER)
  2. Epimax cream [Concomitant]
     Indication: Dermatitis
  3. T gel shampoo [Concomitant]
     Indication: Dermatitis
     Route: 003
  4. Dexamethasone eye drops [Concomitant]
     Indication: Product used for unknown indication
     Route: 003
  5. CHLORPHENIRAMINE MALEATE [Concomitant]
     Active Substance: CHLORPHENIRAMINE MALEATE
     Indication: Seasonal allergy
  6. Hydromol [Concomitant]
     Indication: Dermatitis
  7. ALBUTEROL [Concomitant]
     Active Substance: ALBUTEROL
     Indication: Asthma
     Dosage: (RARELY ATTENDED FOR NEBULISER)
  8. ACYCLOVIR [Concomitant]
     Active Substance: ACYCLOVIR
     Indication: Herpes simplex
  9. OMEPRAZOLE [Concomitant]
     Active Substance: OMEPRAZOLE
     Indication: Gastroenteritis
  10. ADBRY [Suspect]
     Active Substance: TRALOKINUMAB-LDRM
     Indication: Dermatitis atopic
     Route: 058
     Dates: start: 202205
  11. ADBRY [Suspect]
     Active Substance: TRALOKINUMAB-LDRM
     Indication: Dermatitis atopic
     Route: 058
     Dates: end: 202206
  12. DEVICE [Suspect]
     Active Substance: DEVICE
     Indication: Dermatitis atopic
  13. MEBEVERINE HYDROCHLORIDE [Concomitant]
     Active Substance: MEBEVERINE HYDROCHLORIDE
     Indication: Irritable bowel syndrome
  14. DEXAMETHASONE [Concomitant]
     Active Substance: DEXAMETHASONE
     Indication: Immune thrombocytopenia
     Dates: start: 20220612, end: 20220614
  15. acetylcysteine 5% eye drops [Concomitant]
     Indication: Product used for unknown indication
     Route: 003
  16. Sodium hyaluronate eye drops [Concomitant]
     Indication: Dermatitis
     Route: 003
  17. Elocon ointment [Concomitant]
     Indication: Dermatitis
     Dosage: AS NEEDED
     Route: 003

REACTIONS (2)
  - Thrombocytopenia [Recovered/Resolved]
  - Thrombocytopenia [Recovered/Resolved]

NARRATIVE: CASE EVENT DATE: 20220610
